FAERS Safety Report 19705345 (Version 2)
Quarter: 2021Q3

REPORT INFORMATION
  Report Type: Spontaneous
  Country: US (occurrence: US)
  Receive Date: 20210816
  Receipt Date: 20210903
  Transmission Date: 20211014
  Serious: Yes (Other)
  Sender: FDA-Public Use
  Company Number: US-SA-2021SA267470

PATIENT
  Age: 67 Year
  Sex: Female

DRUGS (1)
  1. TOUJEO [Suspect]
     Active Substance: INSULIN GLARGINE
     Indication: TYPE 2 DIABETES MELLITUS
     Dosage: 29 UNITS ONCE DAILY
     Route: 065
     Dates: start: 201605

REACTIONS (6)
  - Abdominal distension [Unknown]
  - Myocardial infarction [Recovered/Resolved]
  - Weight increased [Unknown]
  - Diverticulum [Unknown]
  - Constipation [Unknown]
  - Impaired quality of life [Unknown]
